FAERS Safety Report 12531534 (Version 2)
Quarter: 2016Q3

REPORT INFORMATION
  Report Type: Spontaneous
  Country: US (occurrence: US)
  Receive Date: 20160706
  Receipt Date: 20160711
  Transmission Date: 20161109
  Serious: Yes (Other)
  Sender: FDA-Public Use
  Company Number: US-BAYER-2016-126078

PATIENT
  Age: 61 Year
  Sex: Female
  Weight: 84.35 kg

DRUGS (3)
  1. MIRALAX [Suspect]
     Active Substance: POLYETHYLENE GLYCOL 3350
     Indication: PREOPERATIVE CARE
     Dosage: UNK
  2. DULCOLAX (DOCUSATE SODIUM) [Concomitant]
     Active Substance: DOCUSATE SODIUM
     Dosage: 2 DF, UNK (THE DAY BEFORE COLONOSCOPY)
  3. MIRALAX [Suspect]
     Active Substance: POLYETHYLENE GLYCOL 3350
     Indication: PREOPERATIVE CARE
     Dosage: 64 OUNCES OF GATORADE WITH MIRALAX (238 GRAMS - 14 DOSE)
     Dates: start: 20160620

REACTIONS (6)
  - Malaise [None]
  - Off label use [None]
  - Abdominal discomfort [None]
  - Frequent bowel movements [Recovered/Resolved]
  - Hypertension [None]
  - Headache [Recovered/Resolved]

NARRATIVE: CASE EVENT DATE: 20160620
